FAERS Safety Report 5189748-1 (Version None)
Quarter: 2006Q4

REPORT INFORMATION
  Report Type: 
  Country: None (occurrence: None)
  Receive Date: 20061215
  Receipt Date: 20061204
  Transmission Date: 20070319
  Serious: Yes (Hospitalization)
  Sender: FDA-Public Use
  Company Number: T200601409

PATIENT
  Age: 8 Year
  Sex: Male

DRUGS (1)
  1. METHADOSE [Suspect]
     Indication: ACCIDENTAL EXPOSURE

REACTIONS (16)
  - ACCIDENTAL DRUG INTAKE BY CHILD [None]
  - BLOOD BICARBONATE DECREASED [None]
  - BLOOD GLUCOSE ABNORMAL [None]
  - BLOOD PH DECREASED [None]
  - COMA [None]
  - COMPUTERISED TOMOGRAM ABNORMAL [None]
  - COORDINATION ABNORMAL [None]
  - DYSARTHRIA [None]
  - HEMIPLEGIA [None]
  - HYDROCEPHALUS [None]
  - HYPOTENSION [None]
  - MIOSIS [None]
  - MUTISM [None]
  - NERVOUS SYSTEM DISORDER [None]
  - REFLEXES ABNORMAL [None]
  - RESPIRATION ABNORMAL [None]
